FAERS Safety Report 17717564 (Version 4)
Quarter: 2020Q2

REPORT INFORMATION
  Report Type: Report from Study
  Country: CA (occurrence: CA)
  Receive Date: 20200428
  Receipt Date: 20200615
  Transmission Date: 20200714
  Serious: Yes (Death, Hospitalization, Other)
  Sender: FDA-Public Use
  Company Number: PHHY2017CA012348

PATIENT
  Sex: Male

DRUGS (5)
  1. JADENU [Suspect]
     Active Substance: DEFERASIROX
     Dosage: 360 MG, TID
     Route: 048
  2. JAKAVI [Suspect]
     Active Substance: RUXOLITINIB
     Dosage: 10 MG, BID
     Route: 065
  3. JAKAVI [Suspect]
     Active Substance: RUXOLITINIB
     Indication: MYELOFIBROSIS
     Dosage: 40 MG, QD
     Route: 048
  4. JADENU [Suspect]
     Active Substance: DEFERASIROX
     Indication: MYELOFIBROSIS
     Dosage: UNK
     Route: 065
  5. JAKAVI [Suspect]
     Active Substance: RUXOLITINIB
     Dosage: 35 MG, QD
     Route: 048

REACTIONS (16)
  - Serum ferritin increased [Unknown]
  - Acute kidney injury [Unknown]
  - Lower limb fracture [Unknown]
  - Limb injury [Unknown]
  - Sepsis [Unknown]
  - Anaemia [Unknown]
  - Blood disorder [Unknown]
  - Fall [Unknown]
  - Gout [Unknown]
  - Influenza [Unknown]
  - COVID-19 [Fatal]
  - Immunodeficiency [Fatal]
  - Pyrexia [Unknown]
  - Fatigue [Unknown]
  - Blood urea increased [Unknown]
  - Arthralgia [Unknown]
